FAERS Safety Report 18762943 (Version 1)
Quarter: 2021Q1

REPORT INFORMATION
  Report Type: Spontaneous
  Country: ES (occurrence: ES)
  Receive Date: 20210120
  Receipt Date: 20210120
  Transmission Date: 20210419
  Serious: Yes (Hospitalization)
  Sender: FDA-Public Use
  Company Number: ES-TEVA-2021-ES-1870986

PATIENT
  Age: 90 Year
  Sex: Female

DRUGS (2)
  1. AMOXICILINA/ACIDO CLAVULANICO 875 MG COMPRIMIDOS [Suspect]
     Active Substance: AMOXICILLIN\CLAVULANIC ACID
     Dates: start: 20200122, end: 2020
  2. ACETILCISTEINA CINFA 200 MG POLVO PARA SOLUCION ORAL EFG, 30 SOBRES [Suspect]
     Active Substance: ACETYLCYSTEINE
     Dates: start: 20200122, end: 2020

REACTIONS (4)
  - Generalised oedema [Recovered/Resolved]
  - Erythema [Recovered/Resolved]
  - Tongue oedema [Recovered/Resolved]
  - Pruritus [Recovered/Resolved]

NARRATIVE: CASE EVENT DATE: 20200123
